FAERS Safety Report 11220235 (Version 1)
Quarter: 2015Q2

REPORT INFORMATION
  Report Type: Report from Study
  Country: US (occurrence: US)
  Receive Date: 20150625
  Receipt Date: 20150625
  Transmission Date: 20150821
  Serious: No
  Sender: FDA-Public Use
  Company Number: US-EXELIXIS-CABO-15005437

PATIENT
  Sex: Male
  Weight: 125 kg

DRUGS (5)
  1. DEPAKOTE [Concomitant]
     Active Substance: DIVALPROEX SODIUM
  2. ALLOPURINOL. [Concomitant]
     Active Substance: ALLOPURINOL
  3. CABOZANTINIB [Suspect]
     Active Substance: CABOZANTINIB
     Indication: RENAL CANCER
     Dosage: 60 MG, QD
     Route: 048
     Dates: start: 20150424
  4. CARVEDILOL. [Concomitant]
     Active Substance: CARVEDILOL
  5. AVODART [Concomitant]
     Active Substance: DUTASTERIDE

REACTIONS (3)
  - Fluid retention [Unknown]
  - Oedema peripheral [Unknown]
  - Off label use [Unknown]
